FAERS Safety Report 4899888-X (Version None)
Quarter: 2006Q1

REPORT INFORMATION
  Report Type: 
  Country: None (occurrence: None)
  Receive Date: 20060118
  Receipt Date: 20051020
  Transmission Date: 20060701
  Serious: No
  Sender: FDA-Public Use
  Company Number: 2005002069

PATIENT
  Age: 74 Year
  Sex: Male

DRUGS (4)
  1. TARCEVA [Suspect]
     Indication: NON-SMALL CELL LUNG CANCER
     Dosage: 150 MG (QD), ORAL
     Route: 048
     Dates: start: 20051011
  2. XOPENEX [Concomitant]
  3. ADVAIR DISKUS (SERETIDE MITE) [Concomitant]
  4. ATROVENT [Concomitant]

REACTIONS (4)
  - OXYGEN SATURATION DECREASED [None]
  - PNEUMONIA [None]
  - PRODUCTIVE COUGH [None]
  - RASH [None]
